FAERS Safety Report 7368686-X (Version None)
Quarter: 2011Q1

REPORT INFORMATION
  Report Type: 
  Country: None (occurrence: None)
  Receive Date: 20110321
  Receipt Date: 20110321
  Transmission Date: 20110831
  Serious: Yes (Other)
  Sender: FDA-Public Use
  Company Number: None

PATIENT
  Sex: Female

DRUGS (1)
  1. XANAX [Suspect]
     Indication: ANXIETY
     Dosage: 1-2 TABS BID PRN ORAL
     Route: 048
     Dates: start: 20101107

REACTIONS (1)
  - DRUG INEFFECTIVE [None]
